FAERS Safety Report 4455224-4 (Version None)
Quarter: 2004Q3

REPORT INFORMATION
  Report Type: 
  Country: None (occurrence: None)
  Receive Date: 20040917
  Receipt Date: 20040908
  Transmission Date: 20050211
  Serious: Yes (Other)
  Sender: FDA-Public Use
  Company Number: ENT 2004-0170

PATIENT
  Age: 76 Year
  Sex: Male

DRUGS (9)
  1. COMTAN [Suspect]
     Indication: PARKINSON'S DISEASE
     Dosage: 1200 MG (200 MG, 6  IN 1 D)
     Route: 048
  2. PROLOPA [Concomitant]
  3. ASAFLOW [Concomitant]
  4. PLAVIX [Concomitant]
  5. EXELON [Concomitant]
  6. ESCITALOPRAM OXALATE [Concomitant]
  7. TEMESTA [Concomitant]
  8. ZOCOR [Concomitant]
  9. MOVICOL (MACROGOL) [Concomitant]

REACTIONS (1)
  - PULMONARY FIBROSIS [None]
